FAERS Safety Report 10355266 (Version 1)
Quarter: 2014Q3

REPORT INFORMATION
  Report Type: Spontaneous
  Country: US (occurrence: US)
  Receive Date: 20140731
  Receipt Date: 20140731
  Transmission Date: 20150326
  Serious: Yes (Other)
  Sender: FDA-Public Use
  Company Number: US-BAYER-2014-108900

PATIENT
  Age: 39 Year
  Sex: Female

DRUGS (1)
  1. CALCIUM CARBONATE. [Suspect]
     Active Substance: CALCIUM CARBONATE
     Indication: DYSPEPSIA
     Dosage: APPROXIMATELY 15 TABLETS EVERY DAY

REACTIONS (8)
  - Iron deficiency anaemia [None]
  - Exposure during pregnancy [None]
  - Nausea [None]
  - Dehydration [None]
  - Pica [None]
  - Overdose [None]
  - Vomiting [None]
  - Drug dependence [None]
